FAERS Safety Report 4459561-9 (Version None)
Quarter: 2004Q3

REPORT INFORMATION
  Report Type: 
  Country: None (occurrence: None)
  Receive Date: 20040927
  Receipt Date: 20040922
  Transmission Date: 20050211
  Serious: Yes (Hospitalization)
  Sender: FDA-Public Use
  Company Number: SE-MERCK-0409SWE00027

PATIENT
  Age: 87 Year
  Sex: Female

DRUGS (11)
  1. ACETAMINOPHEN [Concomitant]
     Route: 065
  2. ASPIRIN [Concomitant]
     Route: 065
  3. CYANOCOBALAMIN [Concomitant]
     Route: 065
  4. EPOETIN BETA [Concomitant]
     Route: 065
  5. FOLIC ACID [Concomitant]
     Route: 065
  6. LEVOMEPROMAZINE [Concomitant]
     Route: 065
  7. NITRAZEPAM [Concomitant]
     Route: 065
  8. OXYCODONE HYDROCHLORIDE [Concomitant]
     Route: 065
  9. OXYCODONE HYDROCHLORIDE [Concomitant]
     Route: 065
  10. VIOXX [Suspect]
     Indication: PAIN
     Route: 048
     Dates: start: 20040513, end: 20040515
  11. ZOLEDRONIC ACID [Concomitant]
     Route: 065

REACTIONS (2)
  - CARDIAC FAILURE [None]
  - RENAL FAILURE [None]
